FAERS Safety Report 5285530-5 (Version None)
Quarter: 2007Q1

REPORT INFORMATION
  Report Type: 
  Country: None (occurrence: None)
  Receive Date: 20070328
  Receipt Date: 20060717
  Transmission Date: 20070707
  Serious: Yes (Hospitalization)
  Sender: FDA-Public Use
  Company Number: TRP_0752_2006

PATIENT
  Age: 55 Year
  Sex: Male

DRUGS (5)
  1. RIBASPHERE [Suspect]
     Indication: HEPATITIS C
     Dosage: 600 MG BID PO
     Route: 048
     Dates: start: 20060226, end: 20060307
  2. PEGASYS [Suspect]
     Indication: HEPATITIS C
     Dosage: 180 MCG QWK SC
     Route: 058
     Dates: start: 20060226, end: 20060305
  3. BENICAR [Concomitant]
  4. LISINOPRIL [Concomitant]
  5. GEMFIBROZIL [Concomitant]

REACTIONS (3)
  - ARRHYTHMIA [None]
  - HYPERTENSION [None]
  - MANIA [None]
